FAERS Safety Report 6893751-0 (Version None)
Quarter: 2010Q3

REPORT INFORMATION
  Report Type: 
  Country: None (occurrence: None)
  Receive Date: 20100802
  Receipt Date: 20100722
  Transmission Date: 20110219
  Serious: Yes (Hospitalization)
  Sender: FDA-Public Use
  Company Number: US-BIOGENIDEC-2010BI020359

PATIENT
  Age: 61 Year
  Sex: Female

DRUGS (1)
  1. TYSABRI [Suspect]
     Indication: MULTIPLE SCLEROSIS
     Route: 042
     Dates: start: 20100322, end: 20100501

REACTIONS (6)
  - DECUBITUS ULCER [None]
  - DRUG DOSE OMISSION [None]
  - FATIGUE [None]
  - HALLUCINATION [None]
  - INFLUENZA LIKE ILLNESS [None]
  - PROCEDURAL PAIN [None]
